FAERS Safety Report 9349612 (Version 1)
Quarter: 2013Q2

REPORT INFORMATION
  Report Type: Spontaneous
  Country: FR (occurrence: None)
  Receive Date: 20130611
  Receipt Date: 20130611
  Transmission Date: 20140414
  Serious: Yes (Hospitalization)
  Sender: FDA-Public Use
  Company Number: DSM-2013-00518

PATIENT
  Age: 78 Year
  Sex: Male

DRUGS (5)
  1. COOLMETEC [Suspect]
     Indication: HYPERTENSION
     Route: 048
     Dates: start: 201008, end: 20130328
  2. CRESTOR [Concomitant]
  3. ALLOPURINOL [Concomitant]
  4. KERLONE [Concomitant]
  5. LERCANIDIPINE [Concomitant]

REACTIONS (2)
  - Colitis [None]
  - Intestinal mucosal atrophy [None]
